FAERS Safety Report 11785811 (Version 4)
Quarter: 2015Q4

REPORT INFORMATION
  Report Type: Report from Study
  Country: FR (occurrence: FR)
  Receive Date: 20151130
  Receipt Date: 20151226
  Transmission Date: 20160305
  Serious: Yes (Other)
  Sender: FDA-Public Use
  Company Number: FR-BRISTOL-MYERS SQUIBB COMPANY-BMS-2015-068106

PATIENT
  Age: 77 Year
  Sex: Female
  Weight: 47 kg

DRUGS (6)
  1. NIVOLUMAB [Suspect]
     Active Substance: NIVOLUMAB
     Dosage: 138 MG, 3MG/KG
     Route: 065
     Dates: start: 20151119
  2. NIVOLUMAB [Suspect]
     Active Substance: NIVOLUMAB
     Indication: NON-SMALL CELL LUNG CANCER
     Dosage: 138 MG, 3MG/KG
     Route: 065
     Dates: start: 20150828
  3. NIVOLUMAB [Suspect]
     Active Substance: NIVOLUMAB
     Dosage: 138, 3MG/KG
     Route: 065
     Dates: start: 20151009
  4. NIVOLUMAB [Suspect]
     Active Substance: NIVOLUMAB
     Dosage: 3 MG/KG, 138MG
     Route: 065
     Dates: start: 20151203
  5. NIVOLUMAB [Suspect]
     Active Substance: NIVOLUMAB
     Dosage: 3 MG/KG, 138MG
     Route: 065
     Dates: start: 20151217
  6. NIVOLUMAB [Suspect]
     Active Substance: NIVOLUMAB
     Dosage: 138, 3MG/KG
     Route: 065
     Dates: start: 20151023

REACTIONS (7)
  - Anaemia [Not Recovered/Not Resolved]
  - Hypokalaemia [Recovered/Resolved]
  - Lymphopenia [Not Recovered/Not Resolved]
  - Lymphocyte count abnormal [Not Recovered/Not Resolved]
  - Renal failure [Not Recovered/Not Resolved]
  - Creatinine renal clearance decreased [Recovered/Resolved]
  - Haemoglobin abnormal [Unknown]

NARRATIVE: CASE EVENT DATE: 20150910
